FAERS Safety Report 10611272 (Version 2)
Quarter: 2015Q1

REPORT INFORMATION
  Report Type: Spontaneous
  Country: US (occurrence: US)
  Receive Date: 20141126
  Receipt Date: 20150225
  Transmission Date: 20150720
  Serious: No
  Sender: FDA-Public Use
  Company Number: US-MALLINCKRODT-T201401385

PATIENT
  Age: 73 Year
  Sex: Female
  Weight: 77.98 kg

DRUGS (2)
  1. ULTRA-TECHNEKOW DTE [Suspect]
     Active Substance: MOLYBDENUM MO-99\TECHNETIUM TC-99M
     Indication: BONE SCAN
     Dosage: 25 MCI, SINGLE
     Route: 042
     Dates: start: 20140219, end: 20140219
  2. TECHNESCAN HDP [Suspect]
     Active Substance: OXIDRONATE DISODIUM\TECHNETIUM TC-99M OXIDRONATE
     Indication: BONE SCAN
     Dosage: UNK, SINGLE
     Route: 042
     Dates: start: 20140219, end: 20140219

REACTIONS (3)
  - Uvulitis [Recovering/Resolving]
  - Blood pressure increased [Recovering/Resolving]
  - Hypersensitivity [Recovering/Resolving]

NARRATIVE: CASE EVENT DATE: 20140219
